FAERS Safety Report 6612150-X (Version None)
Quarter: 2010Q1

REPORT INFORMATION
  Report Type: 
  Country: None (occurrence: None)
  Receive Date: 20100219
  Receipt Date: 20090702
  Transmission Date: 20100710
  Serious: Yes (Hospitalization)
  Sender: FDA-Public Use
  Company Number: 554879

PATIENT
  Age: 9 Year
  Sex: Male

DRUGS (3)
  1. KLONOPIN [Suspect]
     Indication: OPPOSITIONAL DEFIANT DISORDER
     Dosage: 0.75 MG DAILY 4 PER DAY ORAL
     Route: 048
     Dates: start: 20070401
  2. CLONAZEPAM [Suspect]
     Indication: ANXIETY
  3. RISPERDAL [Concomitant]

REACTIONS (12)
  - ABNORMAL BEHAVIOUR [None]
  - ANXIETY [None]
  - CONFUSIONAL STATE [None]
  - DISTURBANCE IN ATTENTION [None]
  - DRUG INEFFECTIVE [None]
  - EUPHORIC MOOD [None]
  - FEELING ABNORMAL [None]
  - NERVOUSNESS [None]
  - POOR QUALITY SLEEP [None]
  - RESTLESSNESS [None]
  - VOMITING [None]
  - WRONG TECHNIQUE IN DRUG USAGE PROCESS [None]
